FAERS Safety Report 4430788-5 (Version None)
Quarter: 2004Q3

REPORT INFORMATION
  Report Type: 
  Country: None (occurrence: None)
  Receive Date: 20040823
  Receipt Date: 20040802
  Transmission Date: 20050211
  Serious: Yes (Other)
  Sender: FDA-Public Use
  Company Number: 200417726GDDC

PATIENT
  Age: 87 Year
  Sex: Female
  Weight: 63 kg

DRUGS (4)
  1. ALLEGRA-D [Suspect]
     Indication: RHINITIS
     Dosage: DOSE: 1 TABLET
     Route: 048
     Dates: start: 20040801, end: 20040801
  2. PREDSIM [Concomitant]
     Indication: REFLUX OESOPHAGITIS
     Route: 048
     Dates: start: 20040601
  3. OMEPRAZOLE [Concomitant]
     Indication: REFLUX OESOPHAGITIS
     Route: 048
  4. DIGESAN [Concomitant]
     Route: 048

REACTIONS (7)
  - ASTHENIA [None]
  - DRY MOUTH [None]
  - MUSCLE DISORDER [None]
  - MUSCLE RIGIDITY [None]
  - NAUSEA [None]
  - PARALYSIS [None]
  - VERTIGO [None]
